FAERS Safety Report 10079945 (Version 2)
Quarter: 2014Q2

REPORT INFORMATION
  Report Type: Spontaneous
  Country: US (occurrence: US)
  Receive Date: 20140415
  Receipt Date: 20140520
  Transmission Date: 20141212
  Serious: No
  Sender: FDA-Public Use
  Company Number: US-009507513-1404USA007713

PATIENT
  Sex: Female
  Weight: 65.76 kg

DRUGS (3)
  1. OXYTROL FOR WOMEN [Suspect]
     Indication: STRESS URINARY INCONTINENCE
     Dosage: UNK, UNKNOWN
     Route: 062
     Dates: start: 201402
  2. OXYTROL FOR WOMEN [Suspect]
     Indication: POLLAKIURIA
  3. VIIBRYD [Concomitant]
     Indication: DEPRESSION
     Dosage: UNK, UNKNOWN

REACTIONS (3)
  - Drug administered at inappropriate site [Unknown]
  - Product packaging issue [Unknown]
  - Product adhesion issue [Unknown]
